FAERS Safety Report 25733653 (Version 1)
Quarter: 2025Q3

REPORT INFORMATION
  Report Type: Spontaneous
  Country: EU (occurrence: EU)
  Receive Date: 20250828
  Receipt Date: 20250828
  Transmission Date: 20251021
  Serious: Yes (Other)
  Sender: EXELA PHARMA SCIENCES
  Company Number: EU-EXELAPHARMA-2025EXLA00164

PATIENT
  Age: 78 Year
  Sex: Female

DRUGS (6)
  1. VERAPAMIL HYDROCHLORIDE [Suspect]
     Active Substance: VERAPAMIL HYDROCHLORIDE
     Indication: Arrhythmia
  2. VERAPAMIL HYDROCHLORIDE [Suspect]
     Active Substance: VERAPAMIL HYDROCHLORIDE
     Indication: Heart rate abnormal
  3. METOPROLOL [Concomitant]
     Active Substance: METOPROLOL
     Dosage: 50 MG/DAY
  4. METOPROLOL [Concomitant]
     Active Substance: METOPROLOL
  5. PROPAFENONE [Concomitant]
     Active Substance: PROPAFENONE
  6. IVABRADINE [Concomitant]
     Active Substance: IVABRADINE
     Dosage: 10 MG/DAY

REACTIONS (1)
  - Drug ineffective [Unknown]
